FAERS Safety Report 6375185-0 (Version None)
Quarter: 2009Q3

REPORT INFORMATION
  Report Type: 
  Country: None (occurrence: None)
  Receive Date: 20090921
  Receipt Date: 20090902
  Transmission Date: 20100115
  Serious: Yes (Other)
  Sender: FDA-Public Use
  Company Number: US-1170829

PATIENT
  Age: 79 Year
  Sex: Male

DRUGS (3)
  1. TOBRAMYCIN [Suspect]
     Dosage: (OPHTHALMIC)
     Route: 047
  2. VIGAMOX [Suspect]
     Dosage: (TID OPHTHALMIC)
     Route: 047
  3. PREDNISOLONE ACETATE [Suspect]
     Dosage: (TID OPHTHALMIC)
     Route: 047

REACTIONS (9)
  - ANTERIOR CHAMBER DISORDER [None]
  - CORNEAL INFECTION [None]
  - EYE INFECTION FUNGAL [None]
  - FOREIGN BODY IN EYE [None]
  - INTRAOCULAR LENS COMPLICATION [None]
  - INTRAOCULAR LENS OPACITY [None]
  - KERATITIS [None]
  - PHOTOPHOBIA [None]
  - PROPIONIBACTERIUM INFECTION [None]
